FAERS Safety Report 9042232 (Version 1)
Quarter: 2013Q1

REPORT INFORMATION
  Report Type: Report from Study
  Country: US (occurrence: US)
  Receive Date: 20130129
  Receipt Date: 20130129
  Transmission Date: 20140127
  Serious: No
  Sender: FDA-Public Use
  Company Number: US-ABBOTT-12P-163-0906518-00

PATIENT
  Age: 55 Year
  Sex: Female
  Weight: 65.83 kg

DRUGS (7)
  1. HUMIRA 40 MG/0.8 ML PEN [Suspect]
     Indication: CROHN^S DISEASE
     Dates: start: 20120210, end: 20120210
  2. CLONAZEPAM [Concomitant]
     Indication: ANXIETY
  3. SPIRACTIN [Concomitant]
     Indication: FLUID RETENTION
  4. IMITREX [Concomitant]
     Indication: MIGRAINE
  5. VICODIN [Concomitant]
     Indication: MIGRAINE
  6. PHENERGAN [Concomitant]
     Indication: NAUSEA
  7. VITAMIN B12 [Concomitant]
     Indication: DYSPEPSIA

REACTIONS (2)
  - Migraine [Recovered/Resolved]
  - Fatigue [Recovered/Resolved]
